FAERS Safety Report 12095647 (Version 2)
Quarter: 2016Q1

REPORT INFORMATION
  Report Type: Spontaneous
  Country: DE (occurrence: DE)
  Receive Date: 20160219
  Receipt Date: 20160303
  Transmission Date: 20160526
  Serious: Yes (Hospitalization)
  Sender: FDA-Public Use
  Company Number: DE-ALLERGAN-1625165US

PATIENT
  Age: 74 Year
  Sex: Female

DRUGS (3)
  1. QUETIAPIN [Concomitant]
     Active Substance: QUETIAPINE
     Indication: PRODUCT USED FOR UNKNOWN INDICATION
     Dosage: 0.5 DF, QHS
  2. CRATAEGUTT [Concomitant]
     Indication: PRODUCT USED FOR UNKNOWN INDICATION
  3. GANFORT [Suspect]
     Active Substance: BIMATOPROST\TIMOLOL
     Indication: INTRAOCULAR PRESSURE INCREASED
     Dosage: UNK, QHS
     Route: 047
     Dates: start: 20151224

REACTIONS (7)
  - Rhinorrhoea [Not Recovered/Not Resolved]
  - Hyperaemia [Not Recovered/Not Resolved]
  - Eyelid oedema [Unknown]
  - Headache [Recovered/Resolved]
  - Blood pressure increased [Unknown]
  - Dry eye [Unknown]
  - Dyspnoea [Not Recovered/Not Resolved]

NARRATIVE: CASE EVENT DATE: 20151225
